FAERS Safety Report 20659382 (Version 5)
Quarter: 2022Q3

REPORT INFORMATION
  Report Type: Report from Study
  Country: US (occurrence: US)
  Receive Date: 20220331
  Receipt Date: 20220809
  Transmission Date: 20221026
  Serious: Yes (Hospitalization, Other)
  Sender: FDA-Public Use
  Company Number: US-TAKEDA-2022TUS021206

PATIENT
  Sex: Male

DRUGS (24)
  1. TEDUGLUTIDE [Suspect]
     Active Substance: TEDUGLUTIDE
     Indication: Short-bowel syndrome
     Dosage: 5.7 MILLIGRAM, QD
     Route: 058
     Dates: start: 20220217
  2. TEDUGLUTIDE [Suspect]
     Active Substance: TEDUGLUTIDE
     Indication: Short-bowel syndrome
     Dosage: 5.7 MILLIGRAM, QD
     Route: 058
     Dates: start: 20220217
  3. TEDUGLUTIDE [Suspect]
     Active Substance: TEDUGLUTIDE
     Indication: Short-bowel syndrome
     Dosage: 5.7 MILLIGRAM, QD
     Route: 058
     Dates: start: 20220217
  4. TEDUGLUTIDE [Suspect]
     Active Substance: TEDUGLUTIDE
     Indication: Short-bowel syndrome
     Dosage: 5.7 MILLIGRAM, QD
     Route: 058
     Dates: start: 20220217
  5. TEDUGLUTIDE [Suspect]
     Active Substance: TEDUGLUTIDE
     Indication: Necrotising colitis
     Dosage: 5.7 MILLIGRAM, QD
     Route: 058
     Dates: start: 20220303
  6. TEDUGLUTIDE [Suspect]
     Active Substance: TEDUGLUTIDE
     Indication: Necrotising colitis
     Dosage: 5.7 MILLIGRAM, QD
     Route: 058
     Dates: start: 20220303
  7. TEDUGLUTIDE [Suspect]
     Active Substance: TEDUGLUTIDE
     Indication: Necrotising colitis
     Dosage: 5.7 MILLIGRAM, QD
     Route: 058
     Dates: start: 20220303
  8. TEDUGLUTIDE [Suspect]
     Active Substance: TEDUGLUTIDE
     Indication: Necrotising colitis
     Dosage: 5.7 MILLIGRAM, QD
     Route: 058
     Dates: start: 20220303
  9. TEDUGLUTIDE [Suspect]
     Active Substance: TEDUGLUTIDE
     Indication: Gastrointestinal procedural complication
     Dosage: 0.57 MILLILITER, QD
     Route: 058
     Dates: start: 20220304
  10. TEDUGLUTIDE [Suspect]
     Active Substance: TEDUGLUTIDE
     Indication: Gastrointestinal procedural complication
     Dosage: 0.57 MILLILITER, QD
     Route: 058
     Dates: start: 20220304
  11. TEDUGLUTIDE [Suspect]
     Active Substance: TEDUGLUTIDE
     Indication: Gastrointestinal procedural complication
     Dosage: 0.57 MILLILITER, QD
     Route: 058
     Dates: start: 20220304
  12. TEDUGLUTIDE [Suspect]
     Active Substance: TEDUGLUTIDE
     Indication: Gastrointestinal procedural complication
     Dosage: 0.57 MILLILITER, QD
     Route: 058
     Dates: start: 20220304
  13. TEDUGLUTIDE [Suspect]
     Active Substance: TEDUGLUTIDE
     Indication: Crohn^s disease
     Dosage: 0.57 MILLILITER, QD
     Route: 058
     Dates: start: 202203
  14. TEDUGLUTIDE [Suspect]
     Active Substance: TEDUGLUTIDE
     Indication: Crohn^s disease
     Dosage: 0.57 MILLILITER, QD
     Route: 058
     Dates: start: 202203
  15. TEDUGLUTIDE [Suspect]
     Active Substance: TEDUGLUTIDE
     Indication: Crohn^s disease
     Dosage: 0.57 MILLILITER, QD
     Route: 058
     Dates: start: 202203
  16. TEDUGLUTIDE [Suspect]
     Active Substance: TEDUGLUTIDE
     Indication: Crohn^s disease
     Dosage: 0.57 MILLILITER, QD
     Route: 058
     Dates: start: 202203
  17. TEDUGLUTIDE [Suspect]
     Active Substance: TEDUGLUTIDE
     Indication: Acromegaly
     Dosage: 5.7 MILLIGRAM, QD
     Route: 058
     Dates: start: 20220304
  18. TEDUGLUTIDE [Suspect]
     Active Substance: TEDUGLUTIDE
     Indication: Acromegaly
     Dosage: 5.7 MILLIGRAM, QD
     Route: 058
     Dates: start: 20220304
  19. TEDUGLUTIDE [Suspect]
     Active Substance: TEDUGLUTIDE
     Indication: Acromegaly
     Dosage: 5.7 MILLIGRAM, QD
     Route: 058
     Dates: start: 20220304
  20. TEDUGLUTIDE [Suspect]
     Active Substance: TEDUGLUTIDE
     Indication: Acromegaly
     Dosage: 5.7 MILLIGRAM, QD
     Route: 058
     Dates: start: 20220304
  21. TEDUGLUTIDE [Suspect]
     Active Substance: TEDUGLUTIDE
     Indication: Gigantism
     Dosage: 5.7 MILLIGRAM, QD
     Route: 058
     Dates: start: 202203
  22. TEDUGLUTIDE [Suspect]
     Active Substance: TEDUGLUTIDE
     Indication: Gigantism
     Dosage: 5.7 MILLIGRAM, QD
     Route: 058
     Dates: start: 202203
  23. TEDUGLUTIDE [Suspect]
     Active Substance: TEDUGLUTIDE
     Indication: Gigantism
     Dosage: 5.7 MILLIGRAM, QD
     Route: 058
     Dates: start: 202203
  24. TEDUGLUTIDE [Suspect]
     Active Substance: TEDUGLUTIDE
     Indication: Gigantism
     Dosage: 5.7 MILLIGRAM, QD
     Route: 058
     Dates: start: 202203

REACTIONS (7)
  - Hospitalisation [Unknown]
  - Cellulitis [Recovering/Resolving]
  - Peripheral swelling [Unknown]
  - Decreased appetite [Unknown]
  - Stoma site inflammation [Unknown]
  - Weight decreased [Unknown]
  - Intentional dose omission [Unknown]
